FAERS Safety Report 23606173 (Version 1)
Quarter: 2024Q1

REPORT INFORMATION
  Report Type: Other
  Country: US (occurrence: None)
  Receive Date: 20240307
  Receipt Date: 20240307
  Transmission Date: 20240409
  Serious: Yes (Other)
  Sender: FDA-Public Use
  Company Number: US-ROCHE-3519182

PATIENT
  Age: 32 Year
  Sex: Female
  Weight: 145.28 kg

DRUGS (1)
  1. OCREVUS [Suspect]
     Active Substance: OCRELIZUMAB
     Indication: Multiple sclerosis
     Dosage: DATE OF TREATMENT: 25/FEB/2022, 18/AUG/2022, 08/FEB/20223, 09/AUG/2023, 14/FEB/2024
     Route: 042
     Dates: start: 2018

REACTIONS (5)
  - Guillain-Barre syndrome [Not Recovered/Not Resolved]
  - Influenza [Not Recovered/Not Resolved]
  - White blood cell count increased [Not Recovered/Not Resolved]
  - Memory impairment [Not Recovered/Not Resolved]
  - COVID-19 [Unknown]

NARRATIVE: CASE EVENT DATE: 20240214
